FAERS Safety Report 11814254 (Version 2)
Quarter: 2016Q2

REPORT INFORMATION
  Report Type: Spontaneous
  Country: FR (occurrence: FR)
  Receive Date: 20151209
  Receipt Date: 20160426
  Transmission Date: 20160815
  Serious: Yes (Hospitalization, Other)
  Sender: FDA-Public Use
  Company Number: FR-ELI_LILLY_AND_COMPANY-FR201511008836

PATIENT
  Age: 77 Year
  Sex: Male

DRUGS (9)
  1. CYMBALTA [Suspect]
     Active Substance: DULOXETINE HYDROCHLORIDE
     Indication: PRODUCT USED FOR UNKNOWN INDICATION
     Dosage: 30 MG, EACH MORNING
     Route: 048
     Dates: start: 201502
  2. DEPAKOTE [Suspect]
     Active Substance: DIVALPROEX SODIUM
     Indication: BIPOLAR DISORDER
     Dosage: 1250 MG, QD
     Route: 048
     Dates: start: 2013, end: 20151102
  3. XEROQUEL [Suspect]
     Active Substance: QUETIAPINE FUMARATE
     Dosage: 300 MG, EACH EVENING
     Route: 048
     Dates: start: 20151104
  4. CYMBALTA [Suspect]
     Active Substance: DULOXETINE HYDROCHLORIDE
     Dosage: 30 MG, EACH EVENING
     Route: 048
     Dates: start: 201502
  5. CYMBALTA [Suspect]
     Active Substance: DULOXETINE HYDROCHLORIDE
     Dosage: 30 MG, QD
     Route: 048
  6. XEROQUEL [Suspect]
     Active Substance: QUETIAPINE FUMARATE
     Indication: BIPOLAR DISORDER
     Dosage: 300 MG, EACH EVENING
     Route: 048
     Dates: start: 2013, end: 20151102
  7. DEPAKOTE [Suspect]
     Active Substance: DIVALPROEX SODIUM
     Dosage: 250 MG, EACHE EVENING
     Route: 048
     Dates: start: 20151104
  8. DEPAKOTE [Suspect]
     Active Substance: DIVALPROEX SODIUM
     Dosage: 500 MG, EACH MORNING
     Route: 048
     Dates: start: 20151104
  9. DEPAKOTE [Suspect]
     Active Substance: DIVALPROEX SODIUM
     Dosage: 500 MG, EACH EVENING
     Dates: start: 20151104

REACTIONS (12)
  - Eosinophilia [Unknown]
  - Lymphadenopathy [Unknown]
  - Leukocytosis [Unknown]
  - Pain in extremity [Unknown]
  - Toxic skin eruption [Recovered/Resolved]
  - Creatinine renal clearance decreased [Unknown]
  - Scarlet fever [Unknown]
  - Cardiac murmur [Unknown]
  - Antinuclear antibody positive [Unknown]
  - Neutrophil count increased [Unknown]
  - Pyrexia [Recovered/Resolved]
  - General physical health deterioration [Recovered/Resolved]

NARRATIVE: CASE EVENT DATE: 20151026
